FAERS Safety Report 20681903 (Version 1)
Quarter: 2022Q2

REPORT INFORMATION
  Report Type: Spontaneous
  Country: CA (occurrence: CA)
  Receive Date: 20220407
  Receipt Date: 20220407
  Transmission Date: 20220720
  Serious: Yes (Other)
  Sender: FDA-Public Use
  Company Number: CA-SUN PHARMACEUTICAL INDUSTRIES LTD-2022R1-331617

PATIENT
  Sex: Female

DRUGS (1)
  1. CYPROTERONE\ETHINYL ESTRADIOL [Suspect]
     Active Substance: CYPROTERONE\ETHINYL ESTRADIOL
     Indication: Acne
     Dosage: 1 DOSAGE FORM, QD
     Route: 048

REACTIONS (4)
  - Depressed mood [Recovered/Resolved]
  - Acne [Recovered/Resolved]
  - Fatigue [Recovered/Resolved]
  - Mood altered [Recovered/Resolved]
